FAERS Safety Report 5843502-3 (Version None)
Quarter: 2008Q3

REPORT INFORMATION
  Report Type: 
  Country: None (occurrence: None)
  Receive Date: 20080813
  Receipt Date: 20080804
  Transmission Date: 20090109
  Serious: Yes (Other)
  Sender: FDA-Public Use
  Company Number: US-ROCHE-579829

PATIENT
  Age: 58 Year
  Sex: Male

DRUGS (9)
  1. MYCOPHENOLATE MOFETIL [Suspect]
     Route: 065
  2. MYCOPHENOLATE MOFETIL [Suspect]
     Route: 065
  3. MYCOPHENOLATE MOFETIL [Suspect]
     Route: 065
  4. GANCICLOVIR [Suspect]
     Route: 048
  5. DACLIZUMAB [Suspect]
     Dosage: INDUCTION IMMUNOSUPPRESSION
     Route: 065
  6. TACROLIMUS [Suspect]
     Dosage: CONTINUED WITH A TARGET LEVEL OF 6 TO 8 NG/ML.
     Route: 065
  7. PREDNISONE TAB [Suspect]
     Route: 065
  8. IMMUNOGLOBULIN IV [Concomitant]
  9. THYMOGLOBULIN [Concomitant]
     Dosage: 2 DOSES

REACTIONS (5)
  - BK VIRUS INFECTION [None]
  - CYTOMEGALOVIRUS INFECTION [None]
  - DIARRHOEA [None]
  - THROMBOCYTOPENIA [None]
  - TRANSPLANT REJECTION [None]
